FAERS Safety Report 24034211 (Version 1)
Quarter: 2024Q3

REPORT INFORMATION
  Report Type: Spontaneous
  Country: US (occurrence: US)
  Receive Date: 20240701
  Receipt Date: 20240701
  Transmission Date: 20241016
  Serious: Yes (Hospitalization, Other)
  Sender: MACLEODS
  Company Number: US-MACLEODS PHARMA-MAC2021031142

PATIENT

DRUGS (3)
  1. LACOSAMIDE [Suspect]
     Active Substance: LACOSAMIDE
     Indication: Benign prostatic hyperplasia
     Dosage: 100 MILLIGRAM, BID
     Route: 065
  2. LACOSAMIDE [Suspect]
     Active Substance: LACOSAMIDE
     Indication: Seizure
  3. LEVETIRACETAM [Concomitant]
     Active Substance: LEVETIRACETAM
     Indication: Seizure prophylaxis
     Dosage: UNK
     Route: 065

REACTIONS (2)
  - Sepsis [Recovered/Resolved]
  - Brugada syndrome [Recovered/Resolved]
